FAERS Safety Report 6251733-6 (Version None)
Quarter: 2009Q2

REPORT INFORMATION
  Report Type: 
  Country: None (occurrence: None)
  Receive Date: 20090630
  Receipt Date: 20090625
  Transmission Date: 20091009
  Serious: Yes (Death)
  Sender: FDA-Public Use
  Company Number: US-AMGEN-US353316

PATIENT
  Sex: Male

DRUGS (3)
  1. NPLATE [Suspect]
     Indication: IDIOPATHIC THROMBOCYTOPENIC PURPURA
     Dates: start: 20080905
  2. CORTICOSTEROIDS [Concomitant]
     Dates: start: 20080327
  3. IMMUNOGLOBULINS [Concomitant]
     Dates: start: 20061101

REACTIONS (1)
  - DEATH [None]
